FAERS Safety Report 7111690-7 (Version None)
Quarter: 2010Q4

REPORT INFORMATION
  Report Type: 
  Country: None (occurrence: None)
  Receive Date: 20101118
  Receipt Date: 20101110
  Transmission Date: 20110411
  Serious: Yes (Death, Hospitalization, Other)
  Sender: FDA-Public Use
  Company Number: US-PFIZER INC-2010141285

PATIENT
  Age: 32 Year
  Sex: Female

DRUGS (3)
  1. NELFINAVIR MESYLATE [Suspect]
     Indication: ACQUIRED IMMUNODEFICIENCY SYNDROME
  2. STAVUDINE [Suspect]
     Indication: ACQUIRED IMMUNODEFICIENCY SYNDROME
  3. LAMIVUDINE [Suspect]
     Indication: ACQUIRED IMMUNODEFICIENCY SYNDROME

REACTIONS (5)
  - BRAIN HERNIATION [None]
  - CEREBROVASCULAR ACCIDENT [None]
  - DRUG INEFFECTIVE [None]
  - HYDROCEPHALUS [None]
  - MENINGITIS COCCIDIOIDES [None]
